FAERS Safety Report 22811397 (Version 2)
Quarter: 2023Q4

REPORT INFORMATION
  Report Type: Report from Study
  Country: CA (occurrence: CA)
  Receive Date: 20230810
  Receipt Date: 20231227
  Transmission Date: 20240109
  Serious: Yes (Other)
  Sender: FDA-Public Use
  Company Number: CA-HLS-202301854

PATIENT
  Age: 23 Year
  Sex: Male

DRUGS (1)
  1. CLOZARIL [Suspect]
     Active Substance: CLOZAPINE
     Indication: Product used for unknown indication
     Route: 048
     Dates: start: 20220517, end: 20231102

REACTIONS (15)
  - Electrocardiogram abnormal [Unknown]
  - Neutrophil count decreased [Recovered/Resolved]
  - Neutrophil count [Recovered/Resolved]
  - Myocardial ischaemia [Unknown]
  - Blood pressure decreased [Unknown]
  - Brugada syndrome [Unknown]
  - C-reactive protein increased [Recovered/Resolved]
  - C-reactive protein increased [Recovered/Resolved]
  - Psychotic disorder [Unknown]
  - Defect conduction intraventricular [Unknown]
  - Dyspnoea [Unknown]
  - Tachycardia [Unknown]
  - Troponin increased [Recovered/Resolved]
  - White blood cell count decreased [Recovered/Resolved]
  - White blood cell count decreased [Recovered/Resolved]

NARRATIVE: CASE EVENT DATE: 20230501
